FAERS Safety Report 17417265 (Version 1)
Quarter: 2020Q1

REPORT INFORMATION
  Report Type: Spontaneous
  Country: MD (occurrence: MD)
  Receive Date: 20200214
  Receipt Date: 20200214
  Transmission Date: 20200409
  Serious: Yes (Hospitalization, Other)
  Sender: FDA-Public Use
  Company Number: MD-LUPIN PHARMACEUTICALS INC.-2020-00747

PATIENT
  Sex: Male

DRUGS (7)
  1. SILDENAFIL. [Suspect]
     Active Substance: SILDENAFIL
     Indication: PRODUCT USED FOR UNKNOWN INDICATION
     Dosage: 12.5 MILLIGRAM
     Route: 064
  2. CLARITHROMYCIN. [Suspect]
     Active Substance: CLARITHROMYCIN
     Indication: TORCH INFECTION
  3. VEROSPIRON [Suspect]
     Active Substance: SPIRONOLACTONE
     Indication: PRODUCT USED FOR UNKNOWN INDICATION
     Dosage: 75 MILLIGRAM, BID
     Route: 064
  4. CLEXANE [Suspect]
     Active Substance: ENOXAPARIN SODIUM
     Indication: PRODUCT USED FOR UNKNOWN INDICATION
     Dosage: UNK, CLEXANI 0.2 UA U/S
     Route: 064
  5. SILDENAFIL. [Suspect]
     Active Substance: SILDENAFIL
     Dosage: 25 MILLIGRAM, TID
     Route: 064
  6. CLARITHROMYCIN. [Suspect]
     Active Substance: CLARITHROMYCIN
     Indication: INTRAUTERINE INFECTION
     Route: 064
  7. CLARITHROMYCIN. [Suspect]
     Active Substance: CLARITHROMYCIN
     Indication: STREPTOCOCCAL INFECTION

REACTIONS (6)
  - Foetal growth restriction [Unknown]
  - Foetal distress syndrome [Unknown]
  - Cardiovascular insufficiency [Unknown]
  - Apgar score abnormal [Unknown]
  - Foetal exposure during pregnancy [Unknown]
  - Low birth weight baby [Unknown]
